FAERS Safety Report 4547287-2 (Version None)
Quarter: 2005Q1

REPORT INFORMATION
  Report Type: 
  Country: None (occurrence: None)
  Receive Date: 20050105
  Receipt Date: 20041221
  Transmission Date: 20050727
  Serious: Yes (Hospitalization)
  Sender: FDA-Public Use
  Company Number: MK200412-0345-1

PATIENT
  Age: 82 Year
  Sex: Female

DRUGS (1)
  1. TOFRANIL TAB [Suspect]
     Indication: CANCER PAIN
     Dosage: 30 MG, TID, P.O.
     Route: 048

REACTIONS (1)
  - INAPPROPRIATE ANTIDIURETIC HORMONE SECRETION [None]
